FAERS Safety Report 5154448-0 (Version None)
Quarter: 2006Q4

REPORT INFORMATION
  Report Type: 
  Country: None (occurrence: None)
  Receive Date: 20061114
  Receipt Date: 20061101
  Transmission Date: 20070319
  Serious: Yes (Hospitalization)
  Sender: FDA-Public Use
  Company Number: 2006129477

PATIENT
  Age: 63 Year
  Sex: Female
  Weight: 57 kg

DRUGS (6)
  1. SUTENT [Suspect]
     Indication: METASTATIC RENAL CELL CARCINOMA
     Dosage: 50 MG (50 MG, 1 IN 1 D), ORAL
     Route: 048
     Dates: start: 20060525
  2. OMEPRAZOLE [Concomitant]
  3. LOSARTAN POSTASSIUM [Concomitant]
  4. RILMENIDINE DIHYDROGEN PHOSPHATE (RILMENIDINE DIHYDROGEN PHOSPHATE) [Concomitant]
  5. DOXAZOSIN MESYLATE [Concomitant]
  6. INDAPAMIDE [Concomitant]

REACTIONS (6)
  - ASTHENIA [None]
  - HYPERTENSION [None]
  - JAUNDICE [None]
  - LIVER DISORDER [None]
  - THROMBOCYTOPENIA [None]
  - VOMITING [None]
